FAERS Safety Report 7499206-7 (Version None)
Quarter: 2011Q2

REPORT INFORMATION
  Report Type: 
  Country: None (occurrence: None)
  Receive Date: 20110524
  Receipt Date: 20110504
  Transmission Date: 20111010
  Serious: No
  Sender: FDA-Public Use
  Company Number: US-B.I. PHARMACEUTICALS,INC./RIDGEFIELD-2011-BP-08291BP

PATIENT
  Sex: Female
  Weight: 63.5 kg

DRUGS (6)
  1. TIKOSYN [Concomitant]
     Dosage: 1000 MCG
     Dates: start: 20091014
  2. MULTIPLE SUPPLEMENTS [Concomitant]
     Dates: start: 20091002
  3. PRADAXA [Suspect]
     Indication: ATRIAL FIBRILLATION
     Dosage: 300 MG
     Route: 048
     Dates: start: 20110115, end: 20110303
  4. LEVOTHYROXINE SODIUM [Concomitant]
     Dosage: 0.05 MG
     Dates: start: 20091002
  5. ACTONEL [Concomitant]
     Dates: start: 20091002
  6. VAGITEM [Concomitant]
     Dates: start: 20091002

REACTIONS (1)
  - FLUID RETENTION [None]
